FAERS Safety Report 9682415 (Version 1)
Quarter: 2013Q4

REPORT INFORMATION
  Report Type: Spontaneous
  Country: US (occurrence: US)
  Receive Date: 20131112
  Receipt Date: 20131112
  Transmission Date: 20140711
  Serious: No
  Sender: FDA-Public Use
  Company Number: US-BIOGENIDEC-2013BI106542

PATIENT
  Age: 43 Year
  Sex: Female

DRUGS (3)
  1. AVONEX [Suspect]
     Indication: MULTIPLE SCLEROSIS
     Route: 030
     Dates: start: 200610, end: 20071017
  2. REGULAR INSULIN VIA PUMP [Concomitant]
     Indication: TYPE 1 DIABETES MELLITUS
  3. BETASERON [Concomitant]
     Dates: start: 2007, end: 2011

REACTIONS (1)
  - Optic neuritis [Recovered/Resolved]
